FAERS Safety Report 25942339 (Version 2)
Quarter: 2025Q4

REPORT INFORMATION
  Report Type: Spontaneous
  Country: EU (occurrence: EU)
  Receive Date: 20251021
  Receipt Date: 20251029
  Transmission Date: 20260117
  Serious: Yes (Life-Threatening, Hospitalization, Other)
  Sender: MSN LABORATORIES PRIVATE LIMITED
  Company Number: None

PATIENT

DRUGS (36)
  1. AZACITIDINE [Suspect]
     Active Substance: AZACITIDINE
     Indication: Acute undifferentiated leukaemia
     Dosage: TWO CYCLES AT 4-5 WEEK INTERVALS
     Route: 065
  2. AMIKACIN [Suspect]
     Active Substance: AMIKACIN
     Indication: Febrile neutropenia
     Route: 065
  3. AMIKACIN [Suspect]
     Active Substance: AMIKACIN
     Indication: Antibiotic therapy
  4. AMIKACIN [Suspect]
     Active Substance: AMIKACIN
     Indication: Antibiotic therapy
  5. AVIBACTAM SODIUM\CEFTAZIDIME [Suspect]
     Active Substance: AVIBACTAM SODIUM\CEFTAZIDIME
     Indication: Pseudomonas infection
     Route: 065
  6. AVIBACTAM SODIUM\CEFTAZIDIME [Suspect]
     Active Substance: AVIBACTAM SODIUM\CEFTAZIDIME
     Indication: Febrile neutropenia
  7. COLISTIMETHATE SODIUM\PENICILLIN G POTASSIUM [Suspect]
     Active Substance: COLISTIMETHATE SODIUM\PENICILLIN G POTASSIUM
     Indication: Pseudomonas infection
     Route: 065
  8. CYCLOPHOSPHAMIDE [Suspect]
     Active Substance: CYCLOPHOSPHAMIDE
     Indication: Immunosuppressant drug therapy
     Dosage: POST-TRANSPLANT ON DAYS +3 AND +5
     Route: 065
  9. CYCLOSPORINE [Suspect]
     Active Substance: CYCLOSPORINE
     Indication: Immunosuppressant drug therapy
     Dosage: FROM DAY -1 (TRANSPLANT)
     Route: 065
  10. CYTARABINE [Suspect]
     Active Substance: CYTARABINE
     Indication: Acute myeloid leukaemia
     Dosage: UNK (DAY1-7)STARTED ON DAY 25
     Route: 065
     Dates: start: 2024
  11. DAUNORUBICIN [Suspect]
     Active Substance: DAUNORUBICIN
     Indication: Acute myeloid leukaemia
     Dosage: UNK (DAY 1-3)
     Route: 065
     Dates: start: 2024
  12. FLUDARABINE PHOSPHATE [Suspect]
     Active Substance: FLUDARABINE PHOSPHATE
     Indication: Acute myeloid leukaemia
     Dosage: 30 MG/M2, QD, STARTED ON DAY 25
     Route: 065
     Dates: start: 2024
  13. FOSFOMYCIN [Suspect]
     Active Substance: FOSFOMYCIN
     Indication: Febrile neutropenia
     Route: 065
  14. FOSFOMYCIN [Suspect]
     Active Substance: FOSFOMYCIN
     Indication: Antibiotic therapy
  15. IDARUBICIN HYDROCHLORIDE [Suspect]
     Active Substance: IDARUBICIN HYDROCHLORIDE
     Indication: Acute myeloid leukaemia
     Dosage: STARTED ON DAY 25
     Route: 065
     Dates: start: 2024
  16. LINEZOLID [Suspect]
     Active Substance: LINEZOLID
     Indication: Proctalgia
     Route: 065
  17. MELPHALAN [Suspect]
     Active Substance: MELPHALAN
     Indication: Bone marrow conditioning regimen
     Route: 065
  18. MELPHALAN [Suspect]
     Active Substance: MELPHALAN
     Indication: Acute undifferentiated leukaemia
  19. MEROPENEM [Suspect]
     Active Substance: MEROPENEM
     Indication: Product used for unknown indication
     Dosage: ON DAY 18 OF CHEMOTHERAPY
     Route: 065
  20. MYCOPHENOLATE MOFETIL [Suspect]
     Active Substance: MYCOPHENOLATE MOFETIL
     Indication: Immunosuppressant drug therapy
     Dosage: FROM DAY +1 (TRANSPLANT)
     Route: 065
  21. PIPERACILLIN AND TAZOBACTAM [Suspect]
     Active Substance: PIPERACILLIN SODIUM\TAZOBACTAM SODIUM
     Indication: Febrile neutropenia
     Route: 065
  22. VANCOMYCIN [Suspect]
     Active Substance: VANCOMYCIN
     Indication: Pseudomonas infection
     Route: 065
  23. VANCOMYCIN [Suspect]
     Active Substance: VANCOMYCIN
     Indication: Febrile neutropenia
     Route: 065
  24. VANCOMYCIN [Suspect]
     Active Substance: VANCOMYCIN
     Dosage: ONCE A DAY FOR 10 DAYS
     Route: 042
  25. VENETOCLAX [Suspect]
     Active Substance: VENETOCLAX
     Indication: Acute myeloid leukaemia
     Dosage: STARTED ON DAY 25
     Route: 048
     Dates: start: 2024
  26. VENETOCLAX [Suspect]
     Active Substance: VENETOCLAX
     Indication: Acute myeloid leukaemia
  27. CILASTATIN SODIUM;IMIPENEM MONOHYDRATE;RELEBACTAM MONOHYDRATE [Concomitant]
     Indication: Pseudomonas infection
     Route: 065
  28. FILGRASTIM [Concomitant]
     Active Substance: FILGRASTIM
     Indication: Febrile neutropenia
     Route: 065
  29. DICLOFENAC [Concomitant]
     Active Substance: DICLOFENAC
     Indication: Analgesic therapy
     Dosage: UNK
     Route: 042
  30. DICLOFENAC [Concomitant]
     Active Substance: DICLOFENAC
  31. HYDROXYUREA [Concomitant]
     Active Substance: HYDROXYUREA
     Indication: Hyperleukocytosis
     Dosage: UNK
     Route: 065
  32. POSACONAZOLE [Concomitant]
     Active Substance: POSACONAZOLE
     Indication: Antifungal prophylaxis
     Dosage: UNK
     Route: 065
     Dates: start: 2024
  33. POSACONAZOLE [Concomitant]
     Active Substance: POSACONAZOLE
  34. COLISTIN SULFATE [Concomitant]
     Active Substance: COLISTIN SULFATE
     Route: 065
  35. FENTANYL [Concomitant]
     Active Substance: FENTANYL
     Route: 062
  36. CEFIDEROCOL [Concomitant]
     Active Substance: CEFIDEROCOL
     Dosage: BASIC DOSE FORM (BDF)
     Route: 065

REACTIONS (20)
  - Renal failure [Recovering/Resolving]
  - Sepsis [Recovering/Resolving]
  - Soft tissue infection [Recovered/Resolved]
  - Skin maceration [Recovered/Resolved]
  - Erythema [Recovered/Resolved]
  - Tissue infiltration [Recovered/Resolved]
  - Pseudomonas infection [Recovered/Resolved]
  - Pathogen resistance [Recovered/Resolved]
  - Cellulitis [Recovered/Resolved]
  - Ototoxicity [Unknown]
  - Toxicity to various agents [Unknown]
  - Nephropathy toxic [Recovering/Resolving]
  - Drug ineffective [Unknown]
  - Thrombocytopenia [Recovered/Resolved]
  - Febrile neutropenia [Recovered/Resolved]
  - Neutropenia [Recovered/Resolved]
  - Parainfluenzae virus infection [Unknown]
  - Rhinorrhoea [Unknown]
  - Cough [Unknown]
  - Off label use [Unknown]

NARRATIVE: CASE EVENT DATE: 20240601
